FAERS Safety Report 9943276 (Version 2)
Quarter: 2014Q2

REPORT INFORMATION
  Report Type: Spontaneous
  Country: US (occurrence: US)
  Receive Date: 20140303
  Receipt Date: 20140605
  Transmission Date: 20141212
  Serious: Yes (Death)
  Sender: FDA-Public Use
  Company Number: US-PFIZER INC-2014056577

PATIENT
  Age: 46 Year
  Sex: Male

DRUGS (1)
  1. XYNTHA [Suspect]
     Indication: FACTOR VIII DEFICIENCY
     Dosage: 8000 IU, MONTHLY
     Dates: start: 20130603

REACTIONS (1)
  - Death [Fatal]
